FAERS Safety Report 9791786 (Version 1)
Quarter: 2014Q1

REPORT INFORMATION
  Report Type: Spontaneous
  Country: FR (occurrence: FR)
  Receive Date: 20140102
  Receipt Date: 20140102
  Transmission Date: 20141002
  Serious: Yes (Hospitalization)
  Sender: FDA-Public Use
  Company Number: FR-JNJFOC-20131215902

PATIENT
  Age: 33 Year
  Sex: Female

DRUGS (1)
  1. TRIAFEMI [Suspect]
     Indication: ORAL CONTRACEPTION
     Route: 048
     Dates: end: 20080613

REACTIONS (5)
  - Asthenia [Recovered/Resolved]
  - Paraesthesia [Recovered/Resolved]
  - Migraine with aura [Recovered/Resolved]
  - Tension headache [Recovered/Resolved]
  - Muscle disorder [Recovered/Resolved]
